FAERS Safety Report 18348370 (Version 1)
Quarter: 2020Q4

REPORT INFORMATION
  Report Type: Spontaneous
  Country: IT (occurrence: IT)
  Receive Date: 20201006
  Receipt Date: 20201006
  Transmission Date: 20210114
  Serious: Yes (Other)
  Sender: FDA-Public Use
  Company Number: IT-SUN PHARMACEUTICAL INDUSTRIES LTD-2020RR-262998

PATIENT
  Age: 71 Year
  Sex: Male

DRUGS (6)
  1. OXALIPLATIN. [Suspect]
     Active Substance: OXALIPLATIN
     Indication: COLORECTAL CANCER METASTATIC
     Dosage: 120 MILLIGRAM/SQ. METER, D1
     Route: 065
  2. FLUOROURACIL. [Suspect]
     Active Substance: FLUOROURACIL
     Indication: COLORECTAL CANCER METASTATIC
     Dosage: 750 MILLIGRAM/SQ. METER, DAILY, D1-4, 15-18
     Route: 065
  3. IRINOTECAN [Suspect]
     Active Substance: IRINOTECAN
     Indication: COLORECTAL CANCER METASTATIC
     Dosage: 120 MILLIGRAM/SQ. METER, D1
     Route: 065
  4. AFLIBERCEPT [Suspect]
     Active Substance: AFLIBERCEPT
     Dosage: 2 MILLIGRAM/KILOGRAM, D1
     Route: 065
  5. CAPECITABINE. [Suspect]
     Active Substance: CAPECITABINE
     Indication: COLORECTAL CANCER METASTATIC
     Dosage: 825 MILLIGRAM/SQ. METER, BID, D1-14
     Route: 065
  6. AFLIBERCEPT [Suspect]
     Active Substance: AFLIBERCEPT
     Indication: COLORECTAL CANCER METASTATIC
     Dosage: 4 MILLIGRAM/KILOGRAM, D1
     Route: 065

REACTIONS (13)
  - Alopecia [Unknown]
  - Hypertension [Unknown]
  - Mucosal inflammation [Unknown]
  - Diarrhoea [Unknown]
  - Palmar-plantar erythrodysaesthesia syndrome [Unknown]
  - Dysphonia [Unknown]
  - Blood bilirubin increased [Unknown]
  - Epistaxis [Unknown]
  - Asthenia [Unknown]
  - Metastases to lung [Unknown]
  - Anaemia [Unknown]
  - Rhinitis [Unknown]
  - Therapeutic product effect incomplete [Unknown]
